FAERS Safety Report 5927581-0 (Version None)
Quarter: 2008Q4

REPORT INFORMATION
  Report Type: 
  Country: None (occurrence: None)
  Receive Date: 20081023
  Receipt Date: 20080922
  Transmission Date: 20090506
  Serious: No
  Sender: FDA-Public Use
  Company Number: US-BAYER-200716654NA

PATIENT
  Sex: Male

DRUGS (2)
  1. NEXAVAR [Suspect]
     Indication: HEPATIC NEOPLASM MALIGNANT
     Dosage: TOTAL DAILY DOSE: 800 MG
     Route: 048
  2. WARFARIN SODIUM [Concomitant]
     Dosage: TOTAL DAILY DOSE: 2.5 MG

REACTIONS (2)
  - PERIORBITAL HAEMATOMA [None]
  - RASH [None]
